FAERS Safety Report 8531206-8 (Version None)
Quarter: 2012Q3

REPORT INFORMATION
  Report Type: 
  Country: None (occurrence: None)
  Receive Date: 20120723
  Receipt Date: 20120709
  Transmission Date: 20120928
  Serious: Yes (Other)
  Sender: FDA-Public Use
  Company Number: US-ELI_LILLY_AND_COMPANY-US201207002991

PATIENT
  Sex: Female

DRUGS (2)
  1. HUMALOG [Suspect]
     Dosage: UNK, PRN
     Route: 058
  2. HUMULIN R [Suspect]
     Dosage: UNK
     Route: 042
     Dates: start: 20120628, end: 20120628

REACTIONS (3)
  - HYPOTENSION [None]
  - BLOOD GLUCOSE INCREASED [None]
  - MATERNAL EXPOSURE DURING PREGNANCY [None]
